FAERS Safety Report 5589428-4 (Version None)
Quarter: 2008Q1

REPORT INFORMATION
  Report Type: 
  Country: None (occurrence: None)
  Receive Date: 20080109
  Receipt Date: 20071227
  Transmission Date: 20080703
  Serious: Yes (Other)
  Sender: FDA-Public Use
  Company Number: WAES 0710USA04125

PATIENT
  Age: 59 Year
  Sex: Female

DRUGS (7)
  1. ZETIA [Suspect]
     Indication: HYPERLIPIDAEMIA
     Dosage: 10 MG DAILY PO
     Route: 048
     Dates: start: 20070724, end: 20071011
  2. CRESTOR [Suspect]
     Indication: HYPERLIPIDAEMIA
     Dosage: 5 MG PO, 2.5 MG
     Route: 048
     Dates: start: 20070307, end: 20070710
  3. CRESTOR [Suspect]
     Indication: HYPERLIPIDAEMIA
     Dosage: 5 MG PO, 2.5 MG
     Route: 048
     Dates: start: 20070711, end: 20071011
  4. CANDESARTAN CILEXETIL [Concomitant]
  5. METFORMIN HCI [Concomitant]
  6. PIOGLITAZONE HCL [Concomitant]
  7. VOGLIBOSE [Concomitant]

REACTIONS (3)
  - BLOOD CREATINE PHOSPHOKINASE INCREASED [None]
  - MALAISE [None]
  - MYALGIA [None]
